FAERS Safety Report 21372511 (Version 1)
Quarter: 2022Q3

REPORT INFORMATION
  Report Type: Spontaneous
  Country: TW (occurrence: TW)
  Receive Date: 20220924
  Receipt Date: 20220924
  Transmission Date: 20221027
  Serious: Yes (Life-Threatening, Hospitalization, Other)
  Sender: FDA-Public Use
  Company Number: TW-BoehringerIngelheim2022BI-184998

PATIENT
  Age: 72 Year
  Sex: Male

DRUGS (3)
  1. AMLODIPINE [Suspect]
     Active Substance: AMLODIPINE BESYLATE
     Route: 048
  2. TELMISARTAN [Suspect]
     Active Substance: TELMISARTAN
     Route: 048
  3. CARVEDILOL [Suspect]
     Active Substance: CARVEDILOL
     Route: 048

REACTIONS (5)
  - Intentional overdose [Unknown]
  - Shock [Recovering/Resolving]
  - Electrocardiogram QRS complex shortened [Recovering/Resolving]
  - Hypotension [Recovering/Resolving]
  - Suicide attempt [Unknown]
